FAERS Safety Report 8175112 (Version 6)
Quarter: 2013Q4

REPORT INFORMATION
  Report Type: Spontaneous
  Country: US (occurrence: US)
  Receive Date: 20111011
  Receipt Date: 20131206
  Transmission Date: 20140711
  Serious: Yes (Other)
  Sender: FDA-Public Use
  Company Number: US-PFIZER INC-2011237313

PATIENT
  Age: 61 Year
  Sex: Female
  Weight: 50.3 kg

DRUGS (6)
  1. PREMARIN [Suspect]
     Indication: MENOPAUSE
     Dosage: UNK
     Route: 067
     Dates: start: 2001
  2. PREMARIN [Suspect]
  3. AMLODIPINE [Concomitant]
     Dosage: UNK
  4. VYTORIN [Concomitant]
     Dosage: UNK
  5. OMEPRAZOLE [Concomitant]
     Dosage: UNK
  6. PROGESTERONE [Concomitant]
     Dosage: UNK

REACTIONS (4)
  - Urinary tract infection [Unknown]
  - Vaginal infection [Recovered/Resolved]
  - Anxiety [Unknown]
  - Anger [Unknown]
